FAERS Safety Report 11638752 (Version 1)
Quarter: 2015Q4

REPORT INFORMATION
  Report Type: Spontaneous
  Country: BR (occurrence: BR)
  Receive Date: 20151016
  Receipt Date: 20151016
  Transmission Date: 20160304
  Serious: Yes (Other)
  Sender: FDA-Public Use
  Company Number: BR-ASTRAZENECA-2015SE98118

PATIENT
  Age: 43 Year
  Sex: Male

DRUGS (10)
  1. GLIFAGE XR [Concomitant]
     Active Substance: METFORMIN HYDROCHLORIDE
  2. CIPROFIBRATE [Concomitant]
     Active Substance: CIPROFIBRATE
  3. ENALAPRIL [Concomitant]
     Active Substance: ENALAPRIL
  4. GLIFAGE XR [Concomitant]
     Active Substance: METFORMIN HYDROCHLORIDE
  5. GLIFAGE XR [Concomitant]
     Active Substance: METFORMIN HYDROCHLORIDE
  6. ROSUVASTATIN [Concomitant]
     Active Substance: ROSUVASTATIN
  7. FORXIGA [Suspect]
     Active Substance: DAPAGLIFLOZIN
     Indication: DIABETES MELLITUS
     Route: 048
  8. SILYMARIN [Concomitant]
     Active Substance: MILK THISTLE
  9. GLIFAGE XR [Concomitant]
     Active Substance: METFORMIN HYDROCHLORIDE
  10. ATENSINA [Concomitant]
     Active Substance: CLONIDINE
     Indication: HYPERTENSION

REACTIONS (1)
  - Hyperglycaemia [Unknown]
